FAERS Safety Report 5940764-9 (Version None)
Quarter: 2008Q4

REPORT INFORMATION
  Report Type: 
  Country: None (occurrence: None)
  Receive Date: 20081104
  Receipt Date: 20081028
  Transmission Date: 20090506
  Serious: Yes (Other)
  Sender: FDA-Public Use
  Company Number: US-ASTRAZENECA-2008UW24206

PATIENT
  Age: 81 Year
  Sex: Female

DRUGS (6)
  1. NEXIUM [Suspect]
     Indication: HIATUS HERNIA
     Route: 048
  2. SYNTHROID [Concomitant]
  3. MAXZIDE [Concomitant]
  4. POTASSIUM CHLORIDE [Concomitant]
  5. EVISTA [Concomitant]
  6. COUMADIN [Concomitant]

REACTIONS (2)
  - AORTIC ANEURYSM [None]
  - COAGULATION TIME ABNORMAL [None]
